FAERS Safety Report 14010815 (Version 1)
Quarter: 2017Q3

REPORT INFORMATION
  Report Type: Spontaneous
  Country: US (occurrence: US)
  Receive Date: 20170926
  Receipt Date: 20170926
  Transmission Date: 20171128
  Serious: No
  Sender: FDA-Public Use
  Company Number: US-AMGEN-USASP2017144308

PATIENT
  Age: 58 Year
  Sex: Female

DRUGS (1)
  1. ENBREL [Suspect]
     Active Substance: ETANERCEPT
     Indication: RHEUMATOID ARTHRITIS
     Dosage: 50 MG, UNK
     Route: 065
     Dates: start: 1999, end: 20170823

REACTIONS (7)
  - Skin irritation [Recovering/Resolving]
  - Dyspnoea [Unknown]
  - Pruritus [Recovering/Resolving]
  - Fatigue [Unknown]
  - Papule [Recovering/Resolving]
  - Drug effect decreased [Unknown]
  - Skin disorder [Recovering/Resolving]

NARRATIVE: CASE EVENT DATE: 20170903
